FAERS Safety Report 9548112 (Version 1)
Quarter: 2013Q3

REPORT INFORMATION
  Report Type: Spontaneous
  Country: US (occurrence: US)
  Receive Date: 20130924
  Receipt Date: 20130924
  Transmission Date: 20140515
  Serious: Yes (Hospitalization)
  Sender: FDA-Public Use
  Company Number: US-UCBSA-097742

PATIENT
  Sex: Female

DRUGS (3)
  1. KEPPRA [Suspect]
     Dosage: DOUBLED DOSE
  2. KEPPRA [Suspect]
     Dosage: STABLE DOSE
  3. BUTRANS [Concomitant]
     Dosage: STABLE DOSE

REACTIONS (1)
  - Dyspnoea [Unknown]
